FAERS Safety Report 17231087 (Version 7)
Quarter: 2021Q3

REPORT INFORMATION
  Report Type: Spontaneous
  Country: US (occurrence: US)
  Receive Date: 20200103
  Receipt Date: 20210713
  Transmission Date: 20211014
  Serious: No
  Sender: FDA-Public Use
  Company Number: US-PFIZER INC-2019130345

PATIENT
  Age: 65 Year
  Sex: Male
  Weight: 95.25 kg

DRUGS (2)
  1. LISINOPRIL. [Concomitant]
     Active Substance: LISINOPRIL
     Indication: DIABETES MELLITUS
     Dosage: UNK
  2. TOVIAZ [Suspect]
     Active Substance: FESOTERODINE FUMARATE
     Indication: URINARY INCONTINENCE
     Dosage: 8 MG, UNK

REACTIONS (4)
  - Blood pressure increased [Unknown]
  - Nervousness [Unknown]
  - Malaise [Unknown]
  - Confusional state [Unknown]
